FAERS Safety Report 8059059-5 (Version None)
Quarter: 2012Q1

REPORT INFORMATION
  Report Type: 
  Country: None (occurrence: None)
  Receive Date: 20120120
  Receipt Date: 20110614
  Transmission Date: 20120608
  Serious: No
  Sender: FDA-Public Use
  Company Number: US-BAUSCH-2011BL003944

PATIENT
  Age: 83 Year
  Sex: Male

DRUGS (4)
  1. COUMADIN [Concomitant]
  2. ALAWAY [Suspect]
     Indication: DRY EYE
     Route: 047
     Dates: start: 20110528, end: 20110613
  3. ALAWAY [Suspect]
     Indication: OFF LABEL USE
     Route: 047
     Dates: start: 20110528, end: 20110613
  4. ALAWAY [Suspect]
     Indication: LACRIMATION INCREASED
     Route: 047
     Dates: start: 20110528, end: 20110613

REACTIONS (1)
  - INSTILLATION SITE PAIN [None]
